FAERS Safety Report 5180004-4 (Version None)
Quarter: 2006Q4

REPORT INFORMATION
  Report Type: 
  Country: None (occurrence: None)
  Receive Date: 20061212
  Receipt Date: 20061128
  Transmission Date: 20070319
  Serious: Yes (Hospitalization, Congenital Anomaly)
  Sender: FDA-Public Use
  Company Number: BR-2006-003629

PATIENT
  Age: 1 Day
  Sex: Male
  Weight: 1.7 kg

DRUGS (1)
  1. BETAFERON 250 UG,500 UG AND COPAXONE (BETAFERON (SH Y03967A)) INJECTIO [Suspect]
     Indication: RELAPSING-REMITTING MULTIPLE SCLEROSIS
     Dosage: 500 UG, EVERY 2D, SUBCUTANEOUS
     Route: 058
     Dates: start: 20040730, end: 20050902

REACTIONS (8)
  - CAESAREAN SECTION [None]
  - CEREBELLAR HYPOPLASIA [None]
  - CONGENITAL ANOMALY [None]
  - DANDY-WALKER SYNDROME [None]
  - DRUG EXPOSURE BEFORE PREGNANCY [None]
  - ELECTROENCEPHALOGRAM ABNORMAL [None]
  - INFLAMMATION [None]
  - SMALL FOR DATES BABY [None]
